FAERS Safety Report 15611220 (Version 1)
Quarter: 2018Q4

REPORT INFORMATION
  Report Type: Spontaneous
  Country: IT (occurrence: IT)
  Receive Date: 20181113
  Receipt Date: 20181113
  Transmission Date: 20190205
  Serious: Yes (Other)
  Sender: FDA-Public Use
  Company Number: IT-ACCORD-091795

PATIENT
  Age: 69 Year
  Sex: Male

DRUGS (5)
  1. AMOXICILLIN TRIHYDRATE/CLAVULANATE POTASSIUM [Concomitant]
     Dosage: DOSAGE FORM: UNSPECIFIED
     Route: 065
  2. PREDNISONE. [Suspect]
     Active Substance: PREDNISONE
     Indication: RHEUMATOID ARTHRITIS
     Dosage: 2.5 MG, QD
     Route: 048
  3. METHOTREXATE. [Suspect]
     Active Substance: METHOTREXATE
     Indication: RHEUMATOID ARTHRITIS
     Route: 065
  4. TOCILIZUMAB. [Suspect]
     Active Substance: TOCILIZUMAB
     Indication: RHEUMATOID ARTHRITIS
     Dosage: 8 MG/KG Q4W
     Route: 042
  5. INFLIXIMAB [Suspect]
     Active Substance: INFLIXIMAB
     Indication: RHEUMATOID ARTHRITIS
     Dosage: DOSAGE FORM: LYOPHILIZED POWDER
     Route: 042

REACTIONS (3)
  - Drug ineffective [Unknown]
  - Rheumatoid nodule [Not Recovered/Not Resolved]
  - Rheumatoid arthritis [Unknown]
